FAERS Safety Report 7064937-X (Version None)
Quarter: 2010Q4

REPORT INFORMATION
  Report Type: 
  Country: None (occurrence: None)
  Receive Date: 20101027
  Receipt Date: 20101019
  Transmission Date: 20110411
  Serious: Yes (Other)
  Sender: FDA-Public Use
  Company Number: US-PFIZER INC-2010056761

PATIENT
  Sex: Male
  Weight: 74.83 kg

DRUGS (16)
  1. ALPRAZOLAM [Suspect]
     Indication: NERVOUS SYSTEM DISORDER
     Dosage: 0.5 MG, UNK
     Route: 048
     Dates: start: 19980101
  2. ALPRAZOLAM [Suspect]
     Indication: ANXIETY
  3. QUINAPRIL HCL [Suspect]
     Indication: BLOOD PRESSURE ABNORMAL
     Dosage: 40 MG, 1X/DAY
     Route: 048
     Dates: start: 20030101
  4. POTASSIUM CHLORIDE [Suspect]
     Dosage: 10 MILLIEQUIVALENT, 2X/DAY
     Route: 048
     Dates: start: 20050101
  5. DILTIAZEM [Suspect]
     Dosage: 360 MG, 1X/DAY
     Route: 048
     Dates: start: 20050101
  6. METOPROLOL TARTRATE [Suspect]
     Indication: BLOOD PRESSURE ABNORMAL
     Dosage: 100 MG, 1X/DAY
     Route: 048
     Dates: start: 20050101
  7. ARICEPT [Suspect]
     Indication: AMNESIA
     Dosage: 5 MG, DAILY
     Route: 048
     Dates: start: 20100101, end: 20100101
  8. ARICEPT [Suspect]
     Indication: DEMENTIA
     Dosage: 10 MG DAILY
     Route: 048
     Dates: start: 20100101, end: 20100101
  9. ARICEPT [Suspect]
     Dosage: 5 MG, DAILY
     Route: 048
     Dates: start: 20100101, end: 20100901
  10. AVODART [Suspect]
     Indication: PROSTATIC DISORDER
     Dosage: 0.5 MG, 1X/DAY
     Route: 048
     Dates: start: 20070101
  11. ZETIA [Suspect]
     Indication: CARDIAC DISORDER
     Dosage: 10 MG, 1X/DAY
     Route: 048
     Dates: start: 20060101
  12. UROXATRAL [Suspect]
     Indication: PROSTATIC DISORDER
     Dosage: 10 MG, AT BED TIME
     Route: 048
     Dates: start: 20091101
  13. UROXATRAL [Suspect]
     Indication: URINE FLOW DECREASED
  14. FUROSEMIDE [Suspect]
     Dosage: UNK
     Route: 065
  15. NAMENDA [Suspect]
     Indication: DEMENTIA
     Dosage: 5 MG, 1X/DAY
     Route: 048
     Dates: start: 20100921
  16. AMBIEN [Suspect]

REACTIONS (18)
  - ABDOMINAL DISCOMFORT [None]
  - BLADDER DISCOMFORT [None]
  - DEMENTIA [None]
  - DIARRHOEA [None]
  - DIZZINESS [None]
  - DYSURIA [None]
  - ERYTHEMA [None]
  - EYE IRRITATION [None]
  - GAIT DISTURBANCE [None]
  - HEADACHE [None]
  - INSOMNIA [None]
  - MALAISE [None]
  - NAUSEA [None]
  - OEDEMA PERIPHERAL [None]
  - SOMNOLENCE [None]
  - STRESS [None]
  - URINE FLOW DECREASED [None]
  - VITAMIN D DECREASED [None]
